FAERS Safety Report 9781385 (Version 1)
Quarter: 2013Q4

REPORT INFORMATION
  Report Type: Spontaneous
  Country: CH (occurrence: CH)
  Receive Date: 20131224
  Receipt Date: 20131224
  Transmission Date: 20140711
  Serious: Yes (Hospitalization)
  Sender: FDA-Public Use
  Company Number: CH-ASTRAZENECA-2013SE92780

PATIENT
  Age: 63 Year
  Sex: Male
  Weight: 58 kg

DRUGS (14)
  1. SEROQUEL XR [Suspect]
     Indication: MOOD DISORDER DUE TO A GENERAL MEDICAL CONDITION
     Route: 048
     Dates: start: 201306
  2. SEROQUEL XR [Suspect]
     Indication: MOOD DISORDER DUE TO A GENERAL MEDICAL CONDITION
     Route: 048
  3. AKINETON RETARD [Suspect]
     Indication: DYSTONIA
     Route: 048
     Dates: start: 201306, end: 20131029
  4. AKINETON RETARD [Suspect]
     Indication: DYSTONIA
     Route: 048
  5. SOLIAN [Suspect]
     Indication: MOOD DISORDER DUE TO A GENERAL MEDICAL CONDITION
     Route: 065
     Dates: end: 201306
  6. ORFIRIL [Concomitant]
     Route: 048
  7. ORFIRIL [Concomitant]
     Route: 048
  8. BELOC [Concomitant]
     Dosage: 1 PER 0.5 DAYS
     Route: 048
  9. ASPIRIN CARDIO [Concomitant]
     Route: 048
  10. BELLAFIT [Concomitant]
     Route: 048
     Dates: start: 20131013
  11. VITAMIN D3 [Concomitant]
     Route: 048
  12. VITAMIN E [Concomitant]
     Route: 048
     Dates: start: 20131013
  13. MOVICOL [Concomitant]
     Dosage: 178.5 MG/46.6 MG/350.7 MG/13.125 , 1 DF, 1 PER 1 DAY
     Route: 048
  14. IMOVANE [Concomitant]
     Route: 048

REACTIONS (7)
  - Pneumonia aspiration [Recovered/Resolved]
  - Dystonia [Recovering/Resolving]
  - Dysphagia [Not Recovered/Not Resolved]
  - Dyskinesia [Recovered/Resolved]
  - Salivary hypersecretion [Unknown]
  - Fatigue [Unknown]
  - Weight decreased [Unknown]
